FAERS Safety Report 10011148 (Version 1)
Quarter: 2014Q1

REPORT INFORMATION
  Report Type: Spontaneous
  Country: GB (occurrence: None)
  Receive Date: 20140312
  Receipt Date: 20140312
  Transmission Date: 20141002
  Serious: Yes (Other)
  Sender: FDA-Public Use
  Company Number: 2223758

PATIENT
  Age: 26 Year
  Sex: Male

DRUGS (4)
  1. (METHOTREXATE) [Suspect]
     Indication: OSTEOSARCOMA
     Dates: start: 20130412
  2. MIFAMURTIDE [Suspect]
     Indication: OSTEOSARCOMA
     Dates: start: 20130822, end: 20130906
  3. (CISPLATIN) [Concomitant]
  4. (DOXORUBICIN) [Concomitant]

REACTIONS (5)
  - Demyelination [None]
  - Chills [None]
  - Confusional state [None]
  - Aphasia [None]
  - Toxicity to various agents [None]
